FAERS Safety Report 7744496-6 (Version None)
Quarter: 2011Q3

REPORT INFORMATION
  Report Type: 
  Country: None (occurrence: None)
  Receive Date: 20110912
  Receipt Date: 20110905
  Transmission Date: 20111222
  Serious: Yes (Death, Hospitalization)
  Sender: FDA-Public Use
  Company Number: DE-CELGENEUS-AZADE200800372

PATIENT
  Age: 57 Year
  Sex: Male

DRUGS (2)
  1. VIDAZA [Suspect]
     Indication: MYELODYSPLASTIC SYNDROME
     Route: 048
     Dates: start: 20071214, end: 20071218
  2. VIDAZA [Suspect]
     Route: 058
     Dates: start: 20070921, end: 20071219

REACTIONS (4)
  - CONDITION AGGRAVATED [None]
  - ACUTE MYELOID LEUKAEMIA [None]
  - GASTROENTERITIS [None]
  - ROTAVIRUS INFECTION [None]
